FAERS Safety Report 16389884 (Version 1)
Quarter: 2019Q2

REPORT INFORMATION
  Report Type: Spontaneous
  Country: GB (occurrence: GB)
  Receive Date: 20190604
  Receipt Date: 20190604
  Transmission Date: 20190711
  Serious: Yes (Other)
  Sender: FDA-Public Use
  Company Number: GB-VALIDUS PHARMACEUTICALS LLC-GB-2019VAL000260

PATIENT

DRUGS (2)
  1. ISOTRETINOIN. [Suspect]
     Active Substance: ISOTRETINOIN
     Indication: OVARIAN CANCER
     Dosage: 1 MG/KG, QD
     Route: 048
  2. CALCITRIOL. [Suspect]
     Active Substance: CALCITRIOL
     Indication: OVARIAN CANCER
     Dosage: 0.5 ?G, QD (ESCALATED EVERY WEEK BY 0.5 MCG, TO A MAXIMUM OF 4 MCG)
     Route: 048

REACTIONS (12)
  - Lip pain [Unknown]
  - Rash [Unknown]
  - Arthralgia [Unknown]
  - Constipation [Unknown]
  - Dry skin [Unknown]
  - Eye pain [Unknown]
  - Nausea [Unknown]
  - Vomiting [Unknown]
  - Decreased appetite [Unknown]
  - Pain [Unknown]
  - Fatigue [Unknown]
  - Blood creatinine abnormal [Unknown]
